FAERS Safety Report 9360856 (Version 1)
Quarter: 2013Q2

REPORT INFORMATION
  Report Type: Spontaneous
  Country: US (occurrence: US)
  Receive Date: 20130621
  Receipt Date: 20130621
  Transmission Date: 20140414
  Serious: No
  Sender: FDA-Public Use
  Company Number: US-TEVA-413852USA

PATIENT
  Age: 70 Year
  Sex: Female
  Weight: 72.64 kg

DRUGS (1)
  1. NUVIGIL [Suspect]
     Route: 048
     Dates: end: 20130616

REACTIONS (2)
  - Tongue oedema [Unknown]
  - Dysphagia [Unknown]
